FAERS Safety Report 5317815-8 (Version None)
Quarter: 2007Q2

REPORT INFORMATION
  Report Type: 
  Country: None (occurrence: None)
  Receive Date: 20070507
  Receipt Date: 20070427
  Transmission Date: 20071010
  Serious: Yes (Hospitalization)
  Sender: FDA-Public Use
  Company Number: CH-AMGEN-UK219840

PATIENT
  Age: 62 Year
  Sex: Female

DRUGS (7)
  1. NEUPOGEN [Suspect]
     Indication: CHEMOTHERAPY
     Route: 058
  2. CYCLOPHOSPHAMIDE [Suspect]
     Route: 065
  3. VINCRISTINE [Suspect]
     Route: 065
  4. RITUXIMAB [Concomitant]
     Route: 065
  5. DOXORUBICIN HYDROCHLORIDE [Concomitant]
     Route: 065
  6. PREDNISONE TAB [Concomitant]
     Route: 065
  7. ACYCLOVIR [Concomitant]
     Route: 065

REACTIONS (6)
  - AMNESIA [None]
  - DEHYDRATION [None]
  - DIARRHOEA [None]
  - GENERAL PHYSICAL CONDITION ABNORMAL [None]
  - NAUSEA [None]
  - REVERSIBLE POSTERIOR LEUKOENCEPHALOPATHY SYNDROME [None]
